FAERS Safety Report 11094045 (Version 1)
Quarter: 2015Q2

REPORT INFORMATION
  Report Type: Spontaneous
  Country: US (occurrence: None)
  Receive Date: 20150428
  Receipt Date: 20150428
  Transmission Date: 20150821
  Serious: Yes (Other)
  Sender: FDA-Public Use
  Company Number: PHEH2014US020908

PATIENT
  Age: 57 Year
  Sex: Male
  Weight: 81.6 kg

DRUGS (6)
  1. AMPYRA [Suspect]
     Active Substance: DALFAMPRIDINE
     Indication: GAIT DISTURBANCE
     Route: 048
     Dates: start: 2010, end: 201210
  2. BETASERON (ALBUMIN HUMAN , GLUCOSE, INTERFERON BETA) [Concomitant]
  3. GILENYA [Suspect]
     Active Substance: FINGOLIMOD HYDROCHLORIDE
     Indication: MULTIPLE SCLEROSIS
     Route: 048
  4. REBIF [Suspect]
     Active Substance: INTERFERON BETA-1A
     Indication: PRODUCT USED FOR UNKNOWN INDICATION
  5. LISINOPRIL (LISINOPRIL) [Concomitant]
     Active Substance: LISINOPRIL
  6. METOPROLOL (METOPOROLOL) [Concomitant]

REACTIONS (11)
  - Eye infection [None]
  - Peroneal nerve palsy [None]
  - Hemiparesis [None]
  - Depression [None]
  - Asthenia [None]
  - Headache [None]
  - Vitamin D deficiency [None]
  - Infective iritis [None]
  - Muscular weakness [None]
  - Gait disturbance [None]
  - Dizziness [None]

NARRATIVE: CASE EVENT DATE: 201203
